FAERS Safety Report 8556277-4 (Version None)
Quarter: 2012Q3

REPORT INFORMATION
  Report Type: 
  Country: None (occurrence: None)
  Receive Date: 20120801
  Receipt Date: 20120727
  Transmission Date: 20120928
  Serious: No
  Sender: FDA-Public Use
  Company Number: US-PFIZER INC-2012161110

PATIENT
  Sex: Female
  Weight: 77.098 kg

DRUGS (1)
  1. PREMARIN [Suspect]
     Indication: HORMONE REPLACEMENT THERAPY
     Dosage: UNK, 1X/DAY
     Route: 048
     Dates: start: 20060101, end: 20120101

REACTIONS (5)
  - ARTHRITIS [None]
  - MALAISE [None]
  - HOT FLUSH [None]
  - FEELING HOT [None]
  - LIMB DISCOMFORT [None]
